FAERS Safety Report 8133071 (Version 18)
Quarter: 2013Q4

REPORT INFORMATION
  Report Type: Report from Study
  Country: DE (occurrence: DE)
  Receive Date: 20110913
  Receipt Date: 20131205
  Transmission Date: 20140711
  Serious: Yes (Death, Hospitalization)
  Sender: FDA-Public Use
  Company Number: DE-ROCHE-800984

PATIENT
  Age: 44 Year
  Sex: Male
  Weight: 70 kg

DRUGS (12)
  1. VEMURAFENIB [Suspect]
     Indication: MALIGNANT MELANOMA
     Dosage: DATE OF LAST DOSE PRIOR TO SAE:01 SEP 2011
     Route: 048
     Dates: start: 20110824, end: 20110902
  2. METOCLOPRAMIDE [Concomitant]
     Dosage: DROPS
     Route: 065
     Dates: start: 201107
  3. PANTOZOL (GERMANY) [Concomitant]
     Route: 065
     Dates: start: 201107
  4. LYRICA [Concomitant]
     Route: 065
     Dates: start: 201107
  5. SIMVASTATIN [Concomitant]
     Route: 065
  6. ASS [Concomitant]
     Route: 065
  7. BISOPROLOL [Concomitant]
     Route: 065
  8. LERCADIP [Concomitant]
     Dosage: REPORTED AS ^LERCAPID 10^
     Route: 065
  9. NOVALGIN [Concomitant]
     Route: 065
     Dates: start: 201107
  10. NALOXONE HYDROCHLORIDE [Concomitant]
     Route: 065
     Dates: start: 201107
  11. TILIDINE HYDROCHLORIDE [Concomitant]
     Dosage: 150/12 MG
     Route: 065
     Dates: start: 201107
  12. TOREM [Concomitant]
     Route: 065
     Dates: start: 201107

REACTIONS (1)
  - Intra-abdominal haemorrhage [Fatal]
